FAERS Safety Report 9690565 (Version 1)
Quarter: 2013Q4

REPORT INFORMATION
  Report Type: Spontaneous
  Country: US (occurrence: US)
  Receive Date: 20131115
  Receipt Date: 20131115
  Transmission Date: 20140711
  Serious: Yes (Other)
  Sender: FDA-Public Use
  Company Number: PHEH2013US023564

PATIENT
  Sex: Male

DRUGS (6)
  1. TASIGNA [Suspect]
     Indication: CHRONIC MYELOID LEUKAEMIA
     Dosage: 300 MG, BID
  2. AMLODIPINE [Concomitant]
     Indication: HYPERTENSION
     Dosage: 05 MG, QD
  3. IRBESARTAN [Concomitant]
     Indication: HYPERTENSION
     Dosage: 150 MG, BID
  4. CLONAZEPAM [Concomitant]
     Indication: ANXIETY
     Dosage: 1 MG, BID
  5. BUPROPION HCL [Concomitant]
     Indication: DEPRESSION
     Dosage: 200 MG, BID
  6. B12 ^RECIP^ [Concomitant]
     Dosage: 1000 UG, EVERY WEEK

REACTIONS (18)
  - Malignant melanoma [Unknown]
  - Second primary malignancy [Unknown]
  - Accident [Unknown]
  - Haemorrhage urinary tract [Unknown]
  - Blood urine present [Unknown]
  - Vitamin B12 decreased [Unknown]
  - Vitamin D deficiency [Unknown]
  - Fall [Unknown]
  - Balance disorder [Unknown]
  - Nausea [Unknown]
  - Constipation [Unknown]
  - Dry eye [Unknown]
  - Dry skin [Unknown]
  - Rash [Unknown]
  - Asthenia [Unknown]
  - Rhinitis [Unknown]
  - Influenza [Unknown]
  - Accidental overdose [Unknown]
